FAERS Safety Report 7390339-2 (Version None)
Quarter: 2011Q2

REPORT INFORMATION
  Report Type: 
  Country: None (occurrence: None)
  Receive Date: 20110401
  Receipt Date: 20110321
  Transmission Date: 20111010
  Serious: Yes (Hospitalization)
  Sender: FDA-Public Use
  Company Number: FR-GENENTECH-315581

PATIENT
  Sex: Female

DRUGS (4)
  1. MABTHERA [Suspect]
     Dosage: UNK
     Route: 042
  2. MABTHERA [Suspect]
     Dosage: UNK
     Route: 042
  3. MABTHERA [Suspect]
     Indication: RHEUMATOID ARTHRITIS
     Dosage: UNK
     Route: 042
  4. LOXEN [Suspect]
     Indication: PRODUCT USED FOR UNKNOWN INDICATION
     Dosage: UNK
     Route: 065

REACTIONS (2)
  - HYPERTENSION [None]
  - PAROTID GLAND ENLARGEMENT [None]
